FAERS Safety Report 8014142-5 (Version None)
Quarter: 2011Q4

REPORT INFORMATION
  Report Type: 
  Country: None (occurrence: None)
  Receive Date: 20111227
  Receipt Date: 20111227
  Transmission Date: 20120403
  Serious: Yes (Hospitalization)
  Sender: FDA-Public Use
  Company Number: None

PATIENT
  Age: 45 Year
  Sex: Female
  Weight: 58.3 kg

DRUGS (16)
  1. CITALOPRAM [Concomitant]
  2. FAMOTIDINE [Concomitant]
  3. ZOLEDRONIC ACID [Concomitant]
  4. HYDROCODONE [Concomitant]
  5. LORAZEPAM [Concomitant]
  6. PREDNISONE [Concomitant]
  7. BACTRIM [Concomitant]
  8. FLOVENT [Concomitant]
  9. SIROLIMUS [Concomitant]
  10. ACYCLOVIR [Concomitant]
  11. FOLIC ACID [Concomitant]
  12. NORVASC [Concomitant]
  13. PROLEUKIN [Suspect]
     Indication: CHRONIC GRAFT VERSUS HOST DISEASE
     Dosage: 1.0X10^ 6 IU/M^ 2/DAY (SC)
     Route: 058
     Dates: start: 20110718, end: 20111209
  14. AZITHROMYCIN [Concomitant]
  15. MYCOPHENOLATE MOFETIL (CELLCEPT) [Concomitant]
  16. VORICONAZOLE [Concomitant]

REACTIONS (4)
  - BRONCHOPULMONARY ASPERGILLOSIS [None]
  - PULMONARY CAVITATION [None]
  - PSEUDOMONAS TEST POSITIVE [None]
  - TREATMENT NONCOMPLIANCE [None]
